FAERS Safety Report 6133500-7 (Version None)
Quarter: 2009Q1

REPORT INFORMATION
  Report Type: 
  Country: None (occurrence: None)
  Receive Date: 20090325
  Receipt Date: 20090325
  Transmission Date: 20090719
  Serious: Yes (Hospitalization)
  Sender: FDA-Public Use
  Company Number: None

PATIENT
  Sex: Female
  Weight: 72.8 kg

DRUGS (3)
  1. CYTARABINE [Suspect]
     Dosage: 14320 MG
  2. IDARUBICIN HCL [Suspect]
     Dosage: 64.5 MG
  3. LESTAURTINIB [Suspect]
     Dosage: 5376 MG

REACTIONS (2)
  - ENTEROCOCCAL BACTERAEMIA [None]
  - NEUTROPENIA [None]
